FAERS Safety Report 25427176 (Version 1)
Quarter: 2025Q2

REPORT INFORMATION
  Report Type: Spontaneous
  Country: US (occurrence: US)
  Receive Date: 20250612
  Receipt Date: 20250612
  Transmission Date: 20250716
  Serious: No
  Sender: AVYXA HOLDINGS, LLC
  Company Number: US-AVYXA HOLDINGS, LLC-2025AVY000027

PATIENT

DRUGS (4)
  1. DOCIVYX [Suspect]
     Active Substance: DOCETAXEL
     Indication: Breast cancer female
     Route: 065
  2. TAMOXIFEN [Concomitant]
     Active Substance: TAMOXIFEN
     Indication: Product used for unknown indication
     Route: 065
  3. FRINDOVYX [Concomitant]
     Active Substance: CYCLOPHOSPHAMIDE
     Indication: Product used for unknown indication
     Route: 065
  4. PROCHLORPERAZINE [Concomitant]
     Active Substance: PROCHLORPERAZINE
     Indication: Product used for unknown indication
     Route: 065

REACTIONS (4)
  - Muscle spasms [Unknown]
  - Abdominal pain upper [Unknown]
  - Fatigue [Unknown]
  - Asthenia [Unknown]

NARRATIVE: CASE EVENT DATE: 20250505
